FAERS Safety Report 8504170-5 (Version None)
Quarter: 2012Q2

REPORT INFORMATION
  Report Type: 
  Country: None (occurrence: None)
  Receive Date: 20120405
  Receipt Date: 20090722
  Transmission Date: 20120825
  Serious: Yes (Other)
  Sender: FDA-Public Use
  Company Number: PHEH2009US08421

PATIENT
  Age: 58 Year
  Sex: Male

DRUGS (1)
  1. RECLAST [Suspect]
     Dosage: INFUSION
     Dates: start: 20090301

REACTIONS (2)
  - TOOTH DISORDER [None]
  - FOOT FRACTURE [None]
